FAERS Safety Report 8509090-8 (Version None)
Quarter: 2012Q3

REPORT INFORMATION
  Report Type: 
  Country: None (occurrence: None)
  Receive Date: 20120702
  Receipt Date: 20120620
  Transmission Date: 20120928
  Serious: Yes (Other)
  Sender: FDA-Public Use
  Company Number: 2012SP034429

PATIENT
  Age: 31 Year
  Sex: Female

DRUGS (2)
  1. HALOPERIDOL [Suspect]
     Indication: ANXIETY
     Dosage: 0.5 MG, PO
     Route: 048
     Dates: start: 20120101
  2. MIRTAZAPINE [Suspect]
     Indication: DEPRESSION
     Dosage: 30 MG, PO
     Route: 048
     Dates: start: 20060101

REACTIONS (2)
  - GESTATIONAL DIABETES [None]
  - MATERNAL DRUGS AFFECTING FOETUS [None]
